FAERS Safety Report 15956210 (Version 4)
Quarter: 2023Q4

REPORT INFORMATION
  Report Type: Spontaneous
  Country: PT (occurrence: PT)
  Receive Date: 20190213
  Receipt Date: 20231124
  Transmission Date: 20240110
  Serious: Yes (Death, Hospitalization, Other)
  Sender: FDA-Public Use
  Company Number: PT-EMA-DD-20190205-GONUGUNTLA_N1-120354

PATIENT

DRUGS (28)
  1. LAMIVUDINE [Suspect]
     Active Substance: LAMIVUDINE
     Indication: HIV infection
     Dosage: UNK UNK, UNK
     Route: 065
     Dates: start: 200202
  2. ACETAMINOPHEN [Suspect]
     Active Substance: ACETAMINOPHEN
     Indication: Central pain syndrome
     Dosage: 1 G, TID
     Route: 065
  3. GABAPENTIN [Suspect]
     Active Substance: GABAPENTIN
     Indication: Central pain syndrome
     Dosage: 1600 MG, QD
     Route: 065
     Dates: start: 200202
  4. GABAPENTIN [Suspect]
     Active Substance: GABAPENTIN
     Dosage: 400 MG, TID
     Route: 065
     Dates: start: 200202
  5. GABAPENTIN [Suspect]
     Active Substance: GABAPENTIN
     Dosage: 2400 MG, QD
     Route: 065
     Dates: start: 200301
  6. GABAPENTIN [Suspect]
     Active Substance: GABAPENTIN
     Dosage: 800 MG, QD
     Route: 065
     Dates: start: 200709
  7. GABAPENTIN [Suspect]
     Active Substance: GABAPENTIN
     Dosage: 300 MG, BID
     Route: 065
     Dates: start: 201201
  8. GABAPENTIN [Suspect]
     Active Substance: GABAPENTIN
     Dosage: 1200 MG, QD
     Route: 065
  9. STAVUDINE [Suspect]
     Active Substance: STAVUDINE
     Indication: HIV infection
     Dosage: UNK
     Route: 065
     Dates: start: 202202
  10. STAVUDINE [Suspect]
     Active Substance: STAVUDINE
     Dosage: UNK
     Route: 065
  11. LOPINAVIR\RITONAVIR [Suspect]
     Active Substance: LOPINAVIR\RITONAVIR
     Indication: HIV infection
     Dosage: UNK
     Route: 065
     Dates: start: 200202
  12. BACLOFEN [Suspect]
     Active Substance: BACLOFEN
     Indication: Central pain syndrome
     Dosage: 10 MG, QD
     Route: 065
     Dates: start: 200703
  13. BACLOFEN [Suspect]
     Active Substance: BACLOFEN
     Dosage: 20 MG, QD
     Route: 065
  14. TRAMADOL HYDROCHLORIDE [Suspect]
     Active Substance: TRAMADOL HYDROCHLORIDE
     Indication: Central pain syndrome
     Dosage: 100 MG, BID
     Route: 065
     Dates: start: 200202
  15. TRAMADOL HYDROCHLORIDE [Suspect]
     Active Substance: TRAMADOL HYDROCHLORIDE
     Dosage: 200 MG, BID
     Route: 065
     Dates: start: 200301
  16. TRAMADOL HYDROCHLORIDE [Suspect]
     Active Substance: TRAMADOL HYDROCHLORIDE
     Dosage: 200 MG, BID
     Route: 065
     Dates: start: 201201
  17. AMITRIPTYLINE HYDROCHLORIDE [Suspect]
     Active Substance: AMITRIPTYLINE HYDROCHLORIDE
     Indication: Central pain syndrome
     Dosage: 50 MG, QD
     Route: 065
     Dates: start: 200202
  18. AMITRIPTYLINE HYDROCHLORIDE [Suspect]
     Active Substance: AMITRIPTYLINE HYDROCHLORIDE
     Dosage: 25 MG, QD
     Route: 065
  19. LEUCOVORIN [Concomitant]
     Active Substance: LEUCOVORIN\LEUCOVORIN CALCIUM
     Indication: Product used for unknown indication
     Dosage: UNK
     Route: 065
  20. PYRIMETHAMINE [Concomitant]
     Active Substance: PYRIMETHAMINE
     Indication: Product used for unknown indication
     Dosage: UNK
     Route: 065
  21. SULFADIAZINE [Concomitant]
     Active Substance: SULFADIAZINE
     Indication: Product used for unknown indication
     Dosage: UNK
     Route: 065
  22. CLONAZEPAM [Concomitant]
     Active Substance: CLONAZEPAM
     Indication: Central pain syndrome
     Dosage: 0.25 MG/M2, QD
     Route: 065
     Dates: start: 201201
  23. LOPINAVIR [Concomitant]
     Active Substance: LOPINAVIR
     Indication: Acquired immunodeficiency syndrome
     Dosage: UNK
     Route: 005
  24. RITONAVIR [Concomitant]
     Active Substance: RITONAVIR
     Indication: Acquired immunodeficiency syndrome
     Dosage: UNK
     Route: 065
  25. BUPRENORPHINE [Concomitant]
     Active Substance: BUPRENORPHINE
     Indication: Central pain syndrome
     Dosage: 35 DF (35 UG/HR, UNK)
     Route: 062
     Dates: start: 200709
  26. TENOFOVIR [Concomitant]
     Active Substance: TENOFOVIR
     Indication: Acquired immunodeficiency syndrome
     Dosage: UNK
     Route: 065
  27. MIRTAZAPINE [Concomitant]
     Active Substance: MIRTAZAPINE
     Indication: Central pain syndrome
     Dosage: 15 MG, QD
     Route: 065
     Dates: start: 201201
  28. VENLAFAXINE [Concomitant]
     Active Substance: VENLAFAXINE HYDROCHLORIDE
     Indication: Central pain syndrome
     Dosage: 75 MG, QD
     Route: 062
     Dates: start: 200709

REACTIONS (33)
  - Hepatic failure [Fatal]
  - Gastrointestinal haemorrhage [Fatal]
  - Liver disorder [Fatal]
  - Pancytopenia [Fatal]
  - Portal hypertension [Fatal]
  - Encephalopathy [Fatal]
  - Ascites [Fatal]
  - Coagulopathy [Fatal]
  - Renal failure [Recovering/Resolving]
  - Hemiplegia [Unknown]
  - Renal impairment [Unknown]
  - Nephropathy [Unknown]
  - Product use in unapproved indication [Unknown]
  - Condition aggravated [Unknown]
  - Muscle spasticity [Unknown]
  - CD4 lymphocytes decreased [Unknown]
  - Central pain syndrome [Unknown]
  - Pain [Unknown]
  - Somnolence [Unknown]
  - Electric shock [Unknown]
  - Hypoaesthesia [Unknown]
  - Drug intolerance [Unknown]
  - Paraesthesia [Unknown]
  - Pain [Unknown]
  - Discomfort [Unknown]
  - Musculoskeletal stiffness [Unknown]
  - Facial pain [Unknown]
  - Dysaesthesia [Unknown]
  - Neuralgia [Unknown]
  - Nasopharyngitis [Unknown]
  - Allodynia [Unknown]
  - Vomiting [Unknown]
  - Dizziness [Unknown]

NARRATIVE: CASE EVENT DATE: 20070301
